FAERS Safety Report 4916145-3 (Version None)
Quarter: 2006Q1

REPORT INFORMATION
  Report Type: 
  Country: None (occurrence: None)
  Receive Date: 20060217
  Receipt Date: 20050706
  Transmission Date: 20060701
  Serious: Yes (Other)
  Sender: FDA-Public Use
  Company Number: US-MERCK-0507USA01060

PATIENT
  Sex: Male
  Weight: 93 kg

DRUGS (8)
  1. VIOXX [Suspect]
     Indication: ARTHRALGIA
     Route: 048
     Dates: start: 20021101, end: 20040901
  2. VIOXX [Suspect]
     Indication: BACK PAIN
     Route: 048
     Dates: start: 20021101, end: 20040901
  3. PERCOCET [Concomitant]
     Route: 065
  4. ZOLOFT [Concomitant]
     Route: 065
  5. ELAVIL [Concomitant]
     Route: 048
  6. ZANTAC [Concomitant]
     Route: 065
  7. VICODIN [Concomitant]
     Route: 065
  8. PRINIVIL [Concomitant]
     Route: 048

REACTIONS (4)
  - GASTROOESOPHAGEAL REFLUX DISEASE [None]
  - HYPOAESTHESIA [None]
  - MYOCARDIAL INFARCTION [None]
  - RENAL CYST [None]
